FAERS Safety Report 7465303-5 (Version None)
Quarter: 2011Q2

REPORT INFORMATION
  Report Type: 
  Country: None (occurrence: None)
  Receive Date: 20110505
  Receipt Date: 20110505
  Transmission Date: 20111010
  Serious: Yes (Other)
  Sender: FDA-Public Use
  Company Number: None

PATIENT
  Sex: Male
  Weight: 74.8435 kg

DRUGS (1)
  1. PRAVASTATIN [Suspect]
     Indication: CEREBROVASCULAR ACCIDENT
     Dosage: 20MG 1 @ BED TIME ORAL
     Route: 048
     Dates: start: 20110118, end: 20110214

REACTIONS (6)
  - INSOMNIA [None]
  - JOINT STIFFNESS [None]
  - MYALGIA [None]
  - EXERCISE TOLERANCE DECREASED [None]
  - HYPOAESTHESIA [None]
  - GRIP STRENGTH DECREASED [None]
